FAERS Safety Report 7470762-8 (Version None)
Quarter: 2011Q2

REPORT INFORMATION
  Report Type: 
  Country: None (occurrence: None)
  Receive Date: 20110510
  Receipt Date: 20110428
  Transmission Date: 20111010
  Serious: Yes (Hospitalization, Other)
  Sender: FDA-Public Use
  Company Number: PHHY2011JP31835

PATIENT
  Age: 60 Year
  Sex: Male
  Weight: 64 kg

DRUGS (8)
  1. NEORAL [Suspect]
     Dosage: 200 MG
     Route: 048
  2. AMLODIPINE [Concomitant]
     Indication: HYPERTENSION
     Dosage: 5 MG
     Route: 048
  3. SELBEX [Concomitant]
     Indication: GASTRITIS
     Dosage: 100 MG
     Route: 048
  4. ADONA [Concomitant]
     Indication: HAEMORRHAGE PROPHYLAXIS
     Dosage: 90 MG
  5. TRANSAMIN [Concomitant]
     Indication: HAEMORRHAGE PROPHYLAXIS
     Dosage: 750 MG
     Route: 048
  6. NEORAL [Suspect]
     Indication: APLASTIC ANAEMIA
     Dosage: 200 MG, UNK
     Route: 048
     Dates: start: 20020101, end: 20101101
  7. LENDORMIN [Concomitant]
     Dosage: 0.25 MG
     Route: 048
  8. LOSARTAN POTASSIUM [Concomitant]
     Indication: HYPERTENSION
     Dosage: 50 MG
     Route: 048

REACTIONS (3)
  - HAEMOGLOBIN DECREASED [None]
  - PULMONARY ALVEOLAR HAEMORRHAGE [None]
  - PLATELET COUNT DECREASED [None]
